FAERS Safety Report 16946933 (Version 1)
Quarter: 2019Q4

REPORT INFORMATION
  Report Type: Report from Study
  Country: ES (occurrence: ES)
  Receive Date: 20191022
  Receipt Date: 20191022
  Transmission Date: 20200122
  Serious: Yes (Death, Hospitalization, Other)
  Sender: FDA-Public Use
  Company Number: ES-BRISTOL-MYERS SQUIBB COMPANY-BMS-2019-101491

PATIENT
  Age: 19 Year
  Sex: Female

DRUGS (4)
  1. AMOXICILLINE/ACIDE CLAVULANIQUE [Concomitant]
     Active Substance: AMOXICILLIN\CLAVULANIC ACID
     Indication: COUGH
     Dosage: 875 MILLIGRAM
     Route: 048
     Dates: start: 20191007, end: 20191011
  2. LEVETIRACETAM. [Concomitant]
     Active Substance: LEVETIRACETAM
     Indication: SEIZURE PROPHYLAXIS
     Dosage: 1000 MILLIGRAM
     Route: 048
     Dates: start: 20190830, end: 20191013
  3. DASATINIB. [Suspect]
     Active Substance: DASATINIB
     Indication: BRAIN STEM GLIOMA
     Dosage: 120 MILLIGRAM
     Route: 048
     Dates: start: 20190928, end: 20191011
  4. DEXAMETHASONE. [Concomitant]
     Active Substance: DEXAMETHASONE
     Indication: BRAIN STEM GLIOMA
     Dosage: UNK
     Route: 048
     Dates: start: 20190920, end: 20191013

REACTIONS (2)
  - General physical health deterioration [Fatal]
  - Paroxysmal sympathetic hyperactivity [Recovered/Resolved]

NARRATIVE: CASE EVENT DATE: 20191011
